FAERS Safety Report 7554702-9 (Version None)
Quarter: 2011Q2

REPORT INFORMATION
  Report Type: 
  Country: None (occurrence: None)
  Receive Date: 20110617
  Receipt Date: 20110613
  Transmission Date: 20111010
  Serious: Yes (Other)
  Sender: FDA-Public Use
  Company Number: JP-PFIZER INC-2011128295

PATIENT

DRUGS (2)
  1. AZULFIDINE [Suspect]
     Dosage: UNK
  2. METHOTREXATE [Concomitant]

REACTIONS (1)
  - INTERSTITIAL LUNG DISEASE [None]
